FAERS Safety Report 8323057-4 (Version None)
Quarter: 2012Q2

REPORT INFORMATION
  Report Type: 
  Country: None (occurrence: None)
  Receive Date: 20120430
  Receipt Date: 20120416
  Transmission Date: 20120825
  Serious: Yes (Hospitalization, Disabling, Other)
  Sender: FDA-Public Use
  Company Number: US-MYLANLABS-2009AC000388

PATIENT
  Age: 54 Year
  Sex: Female
  Weight: 117.03 kg

DRUGS (85)
  1. GLYBURIDE [Concomitant]
  2. VYTORIN [Concomitant]
  3. TAZTIA XT [Concomitant]
  4. COREG [Concomitant]
  5. PROMETHAZINE [Concomitant]
  6. LEVAQUIN [Concomitant]
  7. BEXTRA /01400702/ [Concomitant]
  8. SLOW-MAG [Concomitant]
  9. LASIX [Concomitant]
  10. COUMADIN [Concomitant]
  11. BENAZEPRIL HYDROCHLORIDE [Concomitant]
  12. BETAPACE [Concomitant]
  13. CLORAZEPATE DIPOTASSIUM [Concomitant]
  14. CLINDAMYCIN [Concomitant]
  15. AVALIDE [Concomitant]
  16. PROTONIX [Concomitant]
  17. HUMULIN INSULIN [Concomitant]
     Dosage: 70/30 45 UNITS IN THE MORNING 25 UNITS IN THE EVENING
  18. HYDROXYZINE [Concomitant]
  19. AVAPRO [Concomitant]
  20. LOVENOX [Concomitant]
  21. NASACORT [Concomitant]
  22. DIGOXIN [Suspect]
     Route: 048
     Dates: start: 20000401, end: 20090616
  23. ZITHROMAX [Concomitant]
  24. HUMALOG [Concomitant]
  25. FLUOCINONIDE [Concomitant]
  26. HYDROCORTISONE [Concomitant]
  27. ZIAC [Concomitant]
  28. CHLORDIAZEPOXIDE WITH CLIDINUM BROMIDE [Concomitant]
  29. CYCLOBENZAPRINE [Concomitant]
  30. FELODIPINE [Concomitant]
  31. LIBRAX [Concomitant]
     Route: 048
  32. IRON SULFATETHIAMIN COMPOUND TAB [Concomitant]
  33. METRONIDAZOLE [Concomitant]
  34. TRAMADOL HCL [Concomitant]
  35. LOPRESSOR [Concomitant]
  36. TERAZOL /00685102/ [Concomitant]
  37. TIMOLOL [Concomitant]
  38. ZOCOR [Concomitant]
  39. LABETALOL HCL [Concomitant]
  40. POTASSIUM CHLORIDE [Concomitant]
  41. ASPIRIN [Concomitant]
  42. REGLAN [Concomitant]
  43. XALATAN [Concomitant]
  44. TOPROL-XL [Concomitant]
  45. PREMARIN [Concomitant]
  46. MACROBID [Concomitant]
  47. RYTHMOL /00546302/ [Concomitant]
  48. CALCITRIOL [Concomitant]
  49. ALDACTONE [Concomitant]
  50. HYDROCHLOROTHIAZIDE [Concomitant]
  51. LOTREL [Concomitant]
  52. PLAVIX [Concomitant]
  53. BENICAR [Concomitant]
  54. METOLAZONE [Concomitant]
  55. HYDRALAZINE HCL [Concomitant]
     Route: 048
  56. PACERONE [Concomitant]
  57. DIFLUCAN [Concomitant]
  58. HISTINEX D [Concomitant]
  59. NITROGLYCERIN [Concomitant]
  60. MULTI-VITAMIN [Concomitant]
  61. NOVOFINE [Concomitant]
  62. ISORDIL [Concomitant]
  63. METFORMIN HCL [Concomitant]
  64. CLONIDINE [Concomitant]
  65. NORVASC [Concomitant]
  66. CIPROFLOXACIN HCL [Concomitant]
  67. BISOPROLOL FUMARATE [Concomitant]
  68. BUMEX [Concomitant]
  69. CATAPRES [Concomitant]
  70. LORAZEPAM [Concomitant]
  71. ALPHEGAN [Concomitant]
  72. FELODIPINE [Concomitant]
  73. PROPYL-THIOURACIL [Concomitant]
  74. ALBUTEROL [Concomitant]
  75. ESTRADIOL [Concomitant]
  76. AMIODARONE HCL [Concomitant]
  77. LUMIGAN [Concomitant]
  78. CARMOL /00047901/ [Concomitant]
  79. ALTACE [Concomitant]
  80. DIGIBIND [Concomitant]
  81. KAYEXALATE [Concomitant]
  82. VITAMIN D [Concomitant]
  83. POTASSIUM CHLORIDE [Concomitant]
  84. LOTENSIN [Concomitant]
  85. TIAZAC /01460202/ [Concomitant]

REACTIONS (103)
  - LOSS OF EMPLOYMENT [None]
  - VOMITING [None]
  - CHEST PAIN [None]
  - DISABILITY [None]
  - CATHETERISATION CARDIAC [None]
  - FLUID OVERLOAD [None]
  - CARDIAC FAILURE CONGESTIVE [None]
  - ARRHYTHMIA [None]
  - GASTROENTERITIS [None]
  - DEPRESSION [None]
  - IRON DEFICIENCY ANAEMIA [None]
  - ILL-DEFINED DISORDER [None]
  - MICROALBUMINURIA [None]
  - HEART RATE INCREASED [None]
  - MYOCARDIAL ISCHAEMIA [None]
  - OEDEMA PERIPHERAL [None]
  - ELECTROCARDIOGRAM ST SEGMENT ELEVATION [None]
  - AORTIC VALVE STENOSIS [None]
  - STENT PLACEMENT [None]
  - RENAL FAILURE [None]
  - HYPOPHAGIA [None]
  - THYROXINE FREE INCREASED [None]
  - CATHETERISATION CARDIAC ABNORMAL [None]
  - CHILLS [None]
  - COUGH [None]
  - DYSPNOEA EXERTIONAL [None]
  - ELECTROCARDIOGRAM ABNORMAL [None]
  - LUNG DISORDER [None]
  - PAIN [None]
  - INJURY [None]
  - NAUSEA [None]
  - SYNCOPE [None]
  - HEART RATE DECREASED [None]
  - HOT FLUSH [None]
  - DYSLIPIDAEMIA [None]
  - ELECTROCARDIOGRAM ST-T CHANGE [None]
  - HYPOKALAEMIA [None]
  - TYPE 1 DIABETES MELLITUS [None]
  - CARDIOMEGALY [None]
  - CORONARY ARTERIAL STENT INSERTION [None]
  - HEART RATE IRREGULAR [None]
  - LABORATORY TEST ABNORMAL [None]
  - TOXICITY TO VARIOUS AGENTS [None]
  - ANAEMIA [None]
  - TACHYCARDIA [None]
  - HYPERKALAEMIA [None]
  - PLATELET COUNT DECREASED [None]
  - FLUID RETENTION [None]
  - ASTHENIA [None]
  - RALES [None]
  - SUPRAVENTRICULAR TACHYCARDIA [None]
  - ESSENTIAL HYPERTENSION [None]
  - HYPERLIPIDAEMIA [None]
  - HYPOXIA [None]
  - DIABETIC NEUROPATHY [None]
  - WHEEZING [None]
  - EMOTIONAL DISTRESS [None]
  - ATRIAL FIBRILLATION [None]
  - CHEST DISCOMFORT [None]
  - BLOOD GLUCOSE INCREASED [None]
  - RENAL TUBULAR NECROSIS [None]
  - ANAEMIA OF CHRONIC DISEASE [None]
  - MYOCARDIAL INFARCTION [None]
  - BLOOD GLUCOSE DECREASED [None]
  - RENAL FAILURE CHRONIC [None]
  - ARTHRALGIA [None]
  - FATIGUE [None]
  - BRADYCARDIA [None]
  - ANHEDONIA [None]
  - DIARRHOEA [None]
  - LEFT VENTRICULAR HYPERTROPHY [None]
  - ATRIAL FLUTTER [None]
  - WEIGHT INCREASED [None]
  - PERIORBITAL OEDEMA [None]
  - GOITRE [None]
  - CORONARY ARTERY STENOSIS [None]
  - HYPOTHYROIDISM [None]
  - OXYGEN SATURATION DECREASED [None]
  - SOCIAL AVOIDANT BEHAVIOUR [None]
  - ATRIOVENTRICULAR BLOCK COMPLETE [None]
  - RENAL DISORDER [None]
  - VISION BLURRED [None]
  - ORTHOPNOEA [None]
  - DYSPNOEA PAROXYSMAL NOCTURNAL [None]
  - PULMONARY OEDEMA [None]
  - ANGIOPLASTY [None]
  - PROTEINURIA [None]
  - ABDOMINAL PAIN [None]
  - ANGINA PECTORIS [None]
  - HYPERPARATHYROIDISM [None]
  - OSTEOARTHRITIS [None]
  - HYPERTENSION [None]
  - CORONARY ARTERY DISEASE [None]
  - PALPITATIONS [None]
  - DECREASED APPETITE [None]
  - DYSPNOEA [None]
  - ANGINA UNSTABLE [None]
  - BLOOD THYROID STIMULATING HORMONE DECREASED [None]
  - ACANTHOSIS NIGRICANS [None]
  - GASTROOESOPHAGEAL REFLUX DISEASE [None]
  - HEADACHE [None]
  - OBESITY [None]
  - SINUSITIS [None]
